FAERS Safety Report 5055777-1 (Version None)
Quarter: 2006Q3

REPORT INFORMATION
  Report Type: 
  Country: None (occurrence: None)
  Receive Date: 20060714
  Receipt Date: 20060630
  Transmission Date: 20061208
  Serious: Yes (Other)
  Sender: FDA-Public Use
  Company Number: TRP_0791_2006

PATIENT
  Age: 58 Year
  Sex: Male
  Weight: 90.7194 kg

DRUGS (8)
  1. RIBASPHERE [Suspect]
     Indication: HEPATITIS C
     Dosage: 600 MG BID PO
     Route: 048
     Dates: start: 20050101, end: 20050101
  2. PEG-INTRON [Suspect]
     Indication: HEPATITIS C
     Dosage: 1 DF QWK SC
     Route: 058
     Dates: start: 20050101, end: 20050101
  3. RIBASPHERE [Suspect]
     Indication: HEPATITIS C
     Dosage: 600 MG PO
     Route: 048
     Dates: start: 20050101, end: 20050101
  4. PEG-INTRON [Suspect]
     Indication: HEPATITIS C
     Dosage: 0.5 DF QWK SC
     Route: 058
     Dates: start: 20050101, end: 20050101
  5. RIBASPHERE [Suspect]
     Indication: HEPATITIS C
     Dosage: 600 MG BID PO
     Route: 048
     Dates: start: 20050101, end: 20050101
  6. PEG-INTRON [Suspect]
     Indication: HEPATITIS C
     Dosage: 1 DF QWK SC
     Route: 058
     Dates: start: 20050101, end: 20050101
  7. RIBASPHERE [Suspect]
     Indication: HEPATITIS C
     Dosage: 600 MG PO
     Route: 048
     Dates: start: 20050101, end: 20050701
  8. PEG-INTRON [Suspect]
     Indication: HEPATITIS C
     Dosage: 0.5 DF QWK SC
     Route: 058
     Dates: start: 20050101, end: 20050601

REACTIONS (14)
  - ANAEMIA [None]
  - BLOOD CREATINE PHOSPHOKINASE INCREASED [None]
  - BLOOD THYROID STIMULATING HORMONE INCREASED [None]
  - CARDIAC DISORDER [None]
  - CHEST PAIN [None]
  - DYSPNOEA [None]
  - HYPERTENSION [None]
  - HYPOAESTHESIA [None]
  - MALAISE [None]
  - MULTI-ORGAN DISORDER [None]
  - MUSCLE SPASMS [None]
  - PAIN [None]
  - PALLOR [None]
  - THYROID DISORDER [None]
